FAERS Safety Report 12783100 (Version 1)
Quarter: 2016Q3

REPORT INFORMATION
  Report Type: Report from Study
  Country: US (occurrence: US)
  Receive Date: 20160927
  Receipt Date: 20160927
  Transmission Date: 20161109
  Serious: Yes (Other)
  Sender: FDA-Public Use
  Company Number: US-BEH-2009020390

PATIENT
  Age: 19 Year
  Sex: Female

DRUGS (1)
  1. IVIG LYOPHILIZED [Suspect]
     Active Substance: HUMAN IMMUNOGLOBULIN G
     Indication: IMMUNODEFICIENCY COMMON VARIABLE

REACTIONS (3)
  - Drug intolerance [Recovered/Resolved]
  - Angioedema [Recovered/Resolved]
  - Swelling [Recovered/Resolved]
